FAERS Safety Report 4644052-2 (Version None)
Quarter: 2005Q2

REPORT INFORMATION
  Report Type: 
  Country: None (occurrence: None)
  Receive Date: 20050425
  Receipt Date: 20050224
  Transmission Date: 20051028
  Serious: Yes (Death)
  Sender: FDA-Public Use
  Company Number: JP-ROCHE-397190

PATIENT
  Age: 79 Year
  Sex: Male

DRUGS (10)
  1. TAMIFLU [Suspect]
     Indication: INFLUENZA
     Route: 048
     Dates: start: 20050218, end: 20050221
  2. CLARITHROMYCIN [Concomitant]
     Route: 048
     Dates: start: 20050218
  3. BISOLVON [Concomitant]
     Route: 048
     Dates: start: 20050218
  4. BROCIN-CODEINE [Concomitant]
     Route: 048
     Dates: start: 20050218
  5. HUSCODE [Concomitant]
     Dosage: FORM: ORAL (NOS).
     Route: 048
  6. CALONAL [Concomitant]
     Route: 048
  7. INHALER NOS [Concomitant]
     Dosage: TRADE NAME GIVEN AS: ST MERIN.
     Route: 055
  8. KN SOL. 3B [Concomitant]
     Route: 041
  9. HYDROCORTONE [Concomitant]
     Route: 042
  10. KEITEN [Concomitant]
     Route: 042

REACTIONS (10)
  - BLOOD CREATINE PHOSPHOKINASE INCREASED [None]
  - BLOOD GLUCOSE DECREASED [None]
  - HAEMORRHAGE [None]
  - HEPAPLASTIN DECREASED [None]
  - HEPATITIS FULMINANT [None]
  - LOSS OF CONSCIOUSNESS [None]
  - PLATELET COUNT DECREASED [None]
  - PLEURAL EFFUSION [None]
  - PROCEDURAL COMPLICATION [None]
  - PROTHROMBIN TIME PROLONGED [None]
